FAERS Safety Report 13927558 (Version 1)
Quarter: 2017Q3

REPORT INFORMATION
  Report Type: Spontaneous
  Country: US (occurrence: US)
  Receive Date: 20170831
  Receipt Date: 20170831
  Transmission Date: 20171127
  Serious: No
  Sender: FDA-Public Use
  Company Number: None

PATIENT
  Age: 66 Year
  Sex: Female
  Weight: 49.05 kg

DRUGS (2)
  1. ALENDRONATE [Suspect]
     Active Substance: ALENDRONATE SODIUM
     Indication: OSTEOPOROSIS
     Dosage: ?          QUANTITY:1 TABLET(S);OTHER FREQUENCY:ONCE A WEEK;?
     Route: 048
     Dates: start: 20170728, end: 20170812
  2. SULFASALAZINE. [Concomitant]
     Active Substance: SULFASALAZINE

REACTIONS (9)
  - Chills [None]
  - Fatigue [None]
  - Paraesthesia [None]
  - Abdominal pain upper [None]
  - Arthralgia [None]
  - Pain in extremity [None]
  - Headache [None]
  - Decreased appetite [None]
  - Neck pain [None]

NARRATIVE: CASE EVENT DATE: 20170812
